FAERS Safety Report 5109095-3 (Version None)
Quarter: 2006Q3

REPORT INFORMATION
  Report Type: 
  Country: None (occurrence: None)
  Receive Date: 20060920
  Receipt Date: 20060126
  Transmission Date: 20061208
  Serious: Yes (Hospitalization)
  Sender: FDA-Public Use
  Company Number: HU-BRISTOL-MYERS SQUIBB COMPANY-13261201

PATIENT
  Age: 43 Year
  Sex: Male

DRUGS (3)
  1. CISPLATIN [Suspect]
     Indication: METASTATIC GASTRIC CANCER
     Route: 041
     Dates: start: 20051214, end: 20051214
  2. TS-1 [Suspect]
     Indication: METASTATIC GASTRIC CANCER
     Route: 048
     Dates: start: 20051214, end: 20060103
  3. PIROXICAM [Concomitant]
     Indication: ABDOMINAL PAIN
     Route: 048
     Dates: start: 20060108, end: 20060111

REACTIONS (1)
  - SUBILEUS [None]
